FAERS Safety Report 8608367-5 (Version None)
Quarter: 2012Q3

REPORT INFORMATION
  Report Type: 
  Country: None (occurrence: None)
  Receive Date: 20120821
  Receipt Date: 20120810
  Transmission Date: 20120928
  Serious: Yes (Other)
  Sender: FDA-Public Use
  Company Number: CA-JNJFOC-20120303097

PATIENT
  Sex: Female
  Weight: 71 kg

DRUGS (5)
  1. REMICADE [Suspect]
     Indication: CROHN'S DISEASE
     Dosage: LAST INFUSION
     Route: 042
     Dates: start: 20110116, end: 20120130
  2. SOLU-CORTEF [Concomitant]
     Indication: PREMEDICATION
     Route: 042
     Dates: start: 20120130
  3. REMICADE [Suspect]
     Route: 042
     Dates: start: 20120302, end: 20120302
  4. TYLENOL [Concomitant]
     Indication: PREMEDICATION
     Route: 065
  5. BENADRYL [Concomitant]
     Indication: PREMEDICATION
     Route: 042

REACTIONS (11)
  - EYE INFECTION FUNGAL [None]
  - TREMOR [None]
  - HYPOAESTHESIA [None]
  - ERYTHEMA [None]
  - THROAT IRRITATION [None]
  - HYPERHIDROSIS [None]
  - FLUSHING [None]
  - INFUSION RELATED REACTION [None]
  - HYPERTENSION [None]
  - RENAL PAIN [None]
  - HEART RATE INCREASED [None]
